FAERS Safety Report 5012344-3 (Version None)
Quarter: 2006Q2

REPORT INFORMATION
  Report Type: 
  Country: None (occurrence: None)
  Receive Date: 20060525
  Receipt Date: 20060525
  Transmission Date: 20061013
  Serious: Yes (Other)
  Sender: FDA-Public Use
  Company Number: None

PATIENT
  Age: 81 Year
  Sex: Male

DRUGS (5)
  1. LEVAQUIN [Suspect]
     Indication: INFECTION
     Dosage: 500 MG IV DRIP
     Route: 041
     Dates: start: 20060514
  2. ALBUTEROL + ATROVENT NEB [Concomitant]
  3. ALLOPURINOL [Concomitant]
  4. HYDROCHLOROTHIAZIDE [Concomitant]
  5. NEXIUM [Concomitant]

REACTIONS (2)
  - CATHETER RELATED COMPLICATION [None]
  - VEIN DISORDER [None]
